FAERS Safety Report 8162868-5 (Version None)
Quarter: 2012Q1

REPORT INFORMATION
  Report Type: 
  Country: None (occurrence: None)
  Receive Date: 20120224
  Receipt Date: 20120221
  Transmission Date: 20120608
  Serious: Yes (Hospitalization, Other)
  Sender: FDA-Public Use
  Company Number: US-PFIZER INC-2011305642

PATIENT
  Sex: Male

DRUGS (1)
  1. CHANTIX [Suspect]
     Indication: SMOKING CESSATION THERAPY
     Dosage: UNK
     Dates: start: 20090127, end: 20090317

REACTIONS (9)
  - SUICIDE ATTEMPT [None]
  - CONFUSIONAL STATE [None]
  - DIZZINESS [None]
  - INTENTIONAL OVERDOSE [None]
  - DEPRESSION [None]
  - MENTAL DISORDER [None]
  - PARANOIA [None]
  - INSOMNIA [None]
  - ANXIETY [None]
